FAERS Safety Report 6011296-7 (Version None)
Quarter: 2008Q4

REPORT INFORMATION
  Report Type: 
  Country: None (occurrence: None)
  Receive Date: 20081218
  Receipt Date: 20081205
  Transmission Date: 20090506
  Serious: Yes (Death, Hospitalization, Other)
  Sender: FDA-Public Use
  Company Number: JP-PFIZER INC-2008082413

PATIENT

DRUGS (4)
  1. SUNITINIB MALATE [Suspect]
     Indication: RENAL CELL CARCINOMA
     Dosage: DAILY
     Route: 048
     Dates: start: 20080825, end: 20080918
  2. SIGMART [Concomitant]
     Route: 048
  3. OMEPRAL [Concomitant]
     Route: 048
  4. CALONAL [Concomitant]
     Route: 048

REACTIONS (5)
  - DISEASE PROGRESSION [None]
  - HYPERTENSION [None]
  - HYPOTHYROIDISM [None]
  - RENAL CELL CARCINOMA [None]
  - THROMBOCYTOPENIA [None]
